FAERS Safety Report 15206485 (Version 24)
Quarter: 2020Q2

REPORT INFORMATION
  Report Type: Spontaneous
  Country: CA (occurrence: CA)
  Receive Date: 20180727
  Receipt Date: 20200609
  Transmission Date: 20200713
  Serious: Yes (Other)
  Sender: FDA-Public Use
  Company Number: CA-CELLTRION INC.-2017CA006277

PATIENT

DRUGS (26)
  1. INFLECTRA [Suspect]
     Active Substance: INFLIXIMAB-DYYB
     Dosage: 600 MG, EVERY 8 WEEKS
     Route: 042
     Dates: start: 20180327, end: 20180717
  2. INFLECTRA [Suspect]
     Active Substance: INFLIXIMAB-DYYB
     Dosage: 800 MG /Q 0, 2, 6 WEEKS, THEN EVERY 4 WEEKS (RE-INDUCTION)
     Route: 042
     Dates: start: 20200123
  3. INFLECTRA [Suspect]
     Active Substance: INFLIXIMAB-DYYB
     Dosage: 800 MG /Q 0, 2, 6 WEEKS, THEN EVERY 4 WEEKS (RE-INDUCTION)
     Route: 042
     Dates: start: 20200416
  4. INFLECTRA [Suspect]
     Active Substance: INFLIXIMAB-DYYB
     Dosage: 800 MG, (EVERY 8 WEEKS)
     Route: 042
     Dates: start: 20190909
  5. CITALOPRAM [Concomitant]
     Active Substance: CITALOPRAM HYDROBROMIDE
     Dosage: UNK
     Route: 048
  6. INFLECTRA [Suspect]
     Active Substance: INFLIXIMAB-DYYB
     Dosage: 400 MG, SCHEDULED FOR 0, 2, 6, THEN EVERY 8 WEEKS
     Route: 042
     Dates: end: 20180104
  7. INFLECTRA [Suspect]
     Active Substance: INFLIXIMAB-DYYB
     Dosage: 600 MG, EVERY 8 WEEKS
     Dates: start: 20180525
  8. INFLECTRA [Suspect]
     Active Substance: INFLIXIMAB-DYYB
     Dosage: 600 MG, SCHEDULED FOR EVERY 0, 2, 6 WEEKS, THEN EVERY 8 WEEKS (RE-INDUCTION)
     Route: 042
     Dates: start: 20190115
  9. INFLECTRA [Suspect]
     Active Substance: INFLIXIMAB-DYYB
     Dosage: 600 MG, SCHEDULED FOR EVERY 0, 2, 6 WEEKS, THEN EVERY 8 WEEKS (RE-INDUCTION)
     Route: 042
     Dates: start: 20190312
  10. INFLECTRA [Suspect]
     Active Substance: INFLIXIMAB-DYYB
     Dosage: 800 MG /Q 0, 2, 6 WEEKS, THEN EVERY 4 WEEKS (RE-INDUCTION)
     Route: 042
     Dates: start: 20200123
  11. INFLECTRA [Suspect]
     Active Substance: INFLIXIMAB-DYYB
     Dosage: 800 MG /Q 0, 2, 6 WEEKS, THEN EVERY 4 WEEKS (RE-INDUCTION)
     Route: 042
     Dates: start: 20200205
  12. INFLECTRA [Suspect]
     Active Substance: INFLIXIMAB-DYYB
     Dosage: 600 MG, EVERY 8 WEEKS
     Route: 042
     Dates: start: 20180717, end: 20180717
  13. INFLECTRA [Suspect]
     Active Substance: INFLIXIMAB-DYYB
     Dosage: 600 MG, SCHEDULED FOR EVERY 0, 2, 6 WEEKS, THEN EVERY 8 WEEKS (RE-INDUCTION)
     Route: 042
     Dates: start: 20190524
  14. INFLECTRA [Suspect]
     Active Substance: INFLIXIMAB-DYYB
     Dosage: 800 MG, (EVERY 8 WEEKS)
     Route: 042
     Dates: start: 20190715, end: 20191205
  15. INFLECTRA [Suspect]
     Active Substance: INFLIXIMAB-DYYB
     Dosage: 800 MG, (EVERY 8 WEEKS)
     Route: 042
     Dates: start: 20191205
  16. INFLECTRA [Suspect]
     Active Substance: INFLIXIMAB-DYYB
     Dosage: 800 MG /Q 0, 2, 6 WEEKS, THEN EVERY 4 WEEKS (RE-INDUCTION)
     Route: 042
     Dates: start: 20200309
  17. EPIPEN [Concomitant]
     Active Substance: EPINEPHRINE
     Indication: FOOD ALLERGY
     Dosage: UNK, AS NEEDED
  18. CONCERTA [Concomitant]
     Active Substance: METHYLPHENIDATE HYDROCHLORIDE
     Dosage: 36 MG, 1X/DAY (OD)
     Route: 048
     Dates: start: 201906
  19. INFLECTRA [Suspect]
     Active Substance: INFLIXIMAB-DYYB
     Dosage: 800 MG /Q 0, 2, 6 WEEKS, THEN EVERY 4 WEEKS (RE-INDUCTION)
     Route: 042
     Dates: start: 20200123
  20. INFLECTRA [Suspect]
     Active Substance: INFLIXIMAB-DYYB
     Indication: CROHN^S DISEASE
     Dosage: 400 MG, SCHEDULED FOR 0, 2, 6, THEN EVERY 8 WEEKS
     Route: 042
     Dates: start: 20170531, end: 20180104
  21. INFLECTRA [Suspect]
     Active Substance: INFLIXIMAB-DYYB
     Dosage: 800 MG /Q 0, 2, 6 WEEKS, THEN EVERY 4 WEEKS (RE-INDUCTION)
     Route: 042
     Dates: start: 20200309
  22. INFLECTRA [Suspect]
     Active Substance: INFLIXIMAB-DYYB
     Dosage: 800 MG /Q 0, 2, 6 WEEKS, THEN EVERY 4 WEEKS (RE-INDUCTION)
     Route: 042
     Dates: start: 20200416
  23. INFLECTRA [Suspect]
     Active Substance: INFLIXIMAB-DYYB
     Dosage: 800 MG /Q 0, 2, 6 WEEKS, THEN EVERY 4 WEEKS (RE-INDUCTION)
     Route: 042
     Dates: start: 20200514
  24. PREDNISONE. [Concomitant]
     Active Substance: PREDNISONE
     Dosage: 10 MG, ONCE DAILY
  25. INFLECTRA [Suspect]
     Active Substance: INFLIXIMAB-DYYB
     Dosage: 600 MG, SCHEDULED FOR EVERY 0, 2, 6 WEEKS, THEN EVERY 8 WEEKS (RE-INDUCTION)
     Route: 042
     Dates: start: 20181127, end: 20190524
  26. INFLECTRA [Suspect]
     Active Substance: INFLIXIMAB-DYYB
     Dosage: 800 MG /Q 0, 2, 6 WEEKS, THEN EVERY 4 WEEKS (RE-INDUCTION)
     Route: 042
     Dates: start: 20200603

REACTIONS (29)
  - Infection susceptibility increased [Unknown]
  - Drug level below therapeutic [Unknown]
  - Cough [Recovered/Resolved]
  - Increased bronchial secretion [Unknown]
  - Abscess oral [Unknown]
  - Off label use [Unknown]
  - Fatigue [Not Recovered/Not Resolved]
  - Scab [Unknown]
  - Impaired healing [Unknown]
  - Nasal dryness [Unknown]
  - Sinusitis [Unknown]
  - Tooth loss [Unknown]
  - Nasal congestion [Not Recovered/Not Resolved]
  - Seasonal allergy [Not Recovered/Not Resolved]
  - Asthenia [Unknown]
  - Hypoaesthesia [Unknown]
  - Off label use [Unknown]
  - Nasal discharge discolouration [Not Recovered/Not Resolved]
  - Rhinitis [Unknown]
  - Skin infection [Not Recovered/Not Resolved]
  - Dehydration [Unknown]
  - Bloody discharge [Unknown]
  - Off label use [Unknown]
  - Intentional product use issue [Unknown]
  - Pulmonary congestion [Unknown]
  - Eye pruritus [Not Recovered/Not Resolved]
  - Condition aggravated [Not Recovered/Not Resolved]
  - Product dose omission [Unknown]
  - Human bite [Recovering/Resolving]

NARRATIVE: CASE EVENT DATE: 2017
